FAERS Safety Report 8154435-4 (Version None)
Quarter: 2012Q1

REPORT INFORMATION
  Report Type: 
  Country: None (occurrence: None)
  Receive Date: 20120217
  Receipt Date: 20120217
  Transmission Date: 20120608
  Serious: No
  Sender: FDA-Public Use
  Company Number: None

PATIENT
  Sex: Male

DRUGS (1)
  1. TEGRETOL [Suspect]
     Indication: LENNOX-GASTAUT SYNDROME
     Dosage: 800MG/600MG/800MG AM/NOON/QHS PO
     Route: 048
     Dates: start: 20060101

REACTIONS (2)
  - CONDITION AGGRAVATED [None]
  - CONVULSION [None]
